FAERS Safety Report 7033318-7 (Version None)
Quarter: 2010Q4

REPORT INFORMATION
  Report Type: 
  Country: None (occurrence: None)
  Receive Date: 20101007
  Receipt Date: 20101004
  Transmission Date: 20110411
  Serious: Yes (Hospitalization, Other)
  Sender: FDA-Public Use
  Company Number: D0068486A

PATIENT
  Sex: Male
  Weight: 95 kg

DRUGS (4)
  1. ATMADISC MITE [Suspect]
     Dosage: 2PUFF TWICE PER DAY
     Route: 055
     Dates: start: 20100101
  2. LEVOTHYROXINE SODIUM [Concomitant]
     Indication: HYPOTHYROIDISM
     Dosage: 75UG PER DAY
     Route: 048
  3. LORATADINE [Concomitant]
     Indication: ALLERGY TO CHEMICALS
     Route: 048
     Dates: start: 20100101
  4. ANTIBIOTIC [Concomitant]
     Route: 065
     Dates: start: 20100201, end: 20100301

REACTIONS (2)
  - ATRIAL FIBRILLATION [None]
  - CARDIOVERSION [None]
